FAERS Safety Report 7369933-0 (Version None)
Quarter: 2011Q1

REPORT INFORMATION
  Report Type: 
  Country: None (occurrence: None)
  Receive Date: 20110318
  Receipt Date: 20110318
  Transmission Date: 20110831
  Serious: Yes (Death, Hospitalization)
  Sender: FDA-Public Use
  Company Number: None

PATIENT
  Age: 74 Year
  Sex: Female

DRUGS (9)
  1. NYOSCYAMINE [Concomitant]
  2. REVLIMID [Suspect]
     Indication: MULTIPLE MYELOMA
     Dosage: REVLIMID 25MG DAILY X21D ORALLY
     Route: 048
     Dates: start: 20090801, end: 20091201
  3. K-NAB [Concomitant]
  4. LOPERAMIDE [Concomitant]
  5. M.V.I. [Concomitant]
  6. HYDROMORPHONE HCL [Concomitant]
  7. LANSOPRAZOLE [Concomitant]
  8. CIPROFLOXACIN [Concomitant]
  9. FERROSE GLUCONATE [Concomitant]

REACTIONS (6)
  - HYPOKALAEMIA [None]
  - SYNCOPE [None]
  - MUSCULOSKELETAL PAIN [None]
  - ROTATOR CUFF SYNDROME [None]
  - SELF-MEDICATION [None]
  - DEHYDRATION [None]
